FAERS Safety Report 9741555 (Version 1)
Quarter: 2013Q4

REPORT INFORMATION
  Report Type: Spontaneous
  Country: CZ (occurrence: CZ)
  Receive Date: 20131210
  Receipt Date: 20131210
  Transmission Date: 20140711
  Serious: Yes (Disabling, Other)
  Sender: FDA-Public Use
  Company Number: PHHY2013CZ140539

PATIENT
  Sex: Male

DRUGS (2)
  1. DOCETAXEL [Suspect]
     Indication: CHEMOTHERAPY
     Dosage: 75 MG/M2, UNK
  2. PREDNISONE [Suspect]
     Indication: CHEMOTHERAPY

REACTIONS (7)
  - Neuropathy peripheral [Recovered/Resolved]
  - Pain in extremity [Recovered/Resolved]
  - Neuralgia [Recovered/Resolved]
  - Paraesthesia [Recovered/Resolved]
  - Muscular weakness [Recovered/Resolved]
  - Thermohyperaesthesia [Recovered/Resolved]
  - Depression [Unknown]
